FAERS Safety Report 11867756 (Version 2)
Quarter: 2016Q2

REPORT INFORMATION
  Report Type: Spontaneous
  Country: US (occurrence: US)
  Receive Date: 20151224
  Receipt Date: 20160627
  Transmission Date: 20160815
  Serious: Yes (Disabling, Other)
  Sender: FDA-Public Use
  Company Number: US-SA-2015SA213512

PATIENT
  Age: 69 Year
  Sex: Female
  Weight: 117 kg

DRUGS (1)
  1. ALLEGRA ALLERGY [Suspect]
     Active Substance: FEXOFENADINE HYDROCHLORIDE
     Indication: URTICARIA
     Route: 048
     Dates: start: 20151209, end: 20151209

REACTIONS (8)
  - Muscle spasms [Not Recovered/Not Resolved]
  - Dysstasia [Unknown]
  - Musculoskeletal stiffness [Not Recovered/Not Resolved]
  - Back pain [Recovering/Resolving]
  - Headache [Unknown]
  - Arthralgia [Not Recovered/Not Resolved]
  - Paraesthesia [Not Recovered/Not Resolved]
  - Dark circles under eyes [Unknown]

NARRATIVE: CASE EVENT DATE: 20151209
